FAERS Safety Report 5790162-6 (Version None)
Quarter: 2008Q2

REPORT INFORMATION
  Report Type: 
  Country: None (occurrence: None)
  Receive Date: 20080626
  Receipt Date: 20080226
  Transmission Date: 20081010
  Serious: No
  Sender: FDA-Public Use
  Company Number: A0702710A

PATIENT

DRUGS (4)
  1. ALLI [Suspect]
  2. NEURONTIN [Suspect]
  3. CENTRUM SILVER [Concomitant]
  4. FIBER [Concomitant]

REACTIONS (19)
  - BREAST PAIN [None]
  - CRYING [None]
  - DEPRESSED MOOD [None]
  - DRUG INTERACTION [None]
  - FEAR [None]
  - FLATULENCE [None]
  - FRUSTRATION [None]
  - GASTROINTESTINAL DISORDER [None]
  - GASTROOESOPHAGEAL REFLUX DISEASE [None]
  - ILL-DEFINED DISORDER [None]
  - IRRITABLE BOWEL SYNDROME [None]
  - MALAISE [None]
  - MENSTRUATION IRREGULAR [None]
  - MYALGIA [None]
  - NICOTINE DEPENDENCE [None]
  - RECTAL DISCHARGE [None]
  - SELF ESTEEM DECREASED [None]
  - THERAPEUTIC RESPONSE UNEXPECTED [None]
  - WEIGHT INCREASED [None]
